FAERS Safety Report 6536448-9 (Version None)
Quarter: 2010Q1

REPORT INFORMATION
  Report Type: 
  Country: None (occurrence: None)
  Receive Date: 20100113
  Receipt Date: 20100105
  Transmission Date: 20100710
  Serious: Yes (Life-Threatening)
  Sender: FDA-Public Use
  Company Number: JP-MERCK-0912USA03357

PATIENT
  Age: 69 Year
  Sex: Female
  Weight: 63 kg

DRUGS (6)
  1. JANUVIA [Suspect]
     Indication: DIABETES MELLITUS
     Route: 048
     Dates: start: 20091216, end: 20091218
  2. EPADEL S [Concomitant]
     Indication: HYPERLIPIDAEMIA
     Route: 048
     Dates: start: 20061207
  3. NORVASC [Concomitant]
     Indication: HYPERTENSION
     Route: 048
     Dates: start: 20040716
  4. ACTONEL [Concomitant]
     Indication: OSTEOPOROSIS
     Route: 048
     Dates: start: 20071212
  5. MYSLEE [Concomitant]
     Indication: INSOMNIA
     Route: 048
     Dates: start: 20040105
  6. DEPAS [Concomitant]
     Indication: PSYCHOSOMATIC DISEASE
     Route: 048
     Dates: start: 20040105

REACTIONS (6)
  - DYSPNOEA [None]
  - ERYTHEMA [None]
  - FACE OEDEMA [None]
  - LOCALISED OEDEMA [None]
  - OEDEMA MOUTH [None]
  - PRURITUS [None]
